FAERS Safety Report 12745184 (Version 1)
Quarter: 2016Q3

REPORT INFORMATION
  Report Type: Spontaneous
  Country: US (occurrence: US)
  Receive Date: 20160914
  Receipt Date: 20160914
  Transmission Date: 20161109
  Serious: No
  Sender: FDA-Public Use
  Company Number: None

PATIENT
  Age: 2 Month
  Weight: 67.13 kg

DRUGS (12)
  1. TRAMADOL. [Concomitant]
     Active Substance: TRAMADOL
  2. METHOCARBAM 750MG TAB CAMB [Suspect]
     Active Substance: METHOCARBAMOL
     Dosage: 2X 3 A DAY, MOUTH
     Route: 048
     Dates: start: 20160802, end: 20160802
  3. CENTRUM OVER 50 [Concomitant]
  4. WELLBEUTIN [Concomitant]
  5. HYDROMORPHONE [Concomitant]
     Active Substance: HYDROMORPHONE
  6. SEVELLA [Concomitant]
  7. HORIZANT [Suspect]
     Active Substance: GABAPENTIN ENACARBIL
     Indication: FIBROMYALGIA
     Dosage: 1 DF 2 A DAY, MOUTH
     Route: 048
     Dates: start: 201606, end: 20160705
  8. HORIZANT [Suspect]
     Active Substance: GABAPENTIN ENACARBIL
     Indication: ABDOMINAL ADHESIONS
     Dosage: 1 DF 2 A DAY, MOUTH
     Route: 048
     Dates: start: 201606, end: 20160705
  9. ZOLOFT [Concomitant]
     Active Substance: SERTRALINE HYDROCHLORIDE
  10. HORIZANT [Suspect]
     Active Substance: GABAPENTIN ENACARBIL
     Indication: NERVOUS SYSTEM DISORDER
     Dosage: 1 DF 2 A DAY, MOUTH
     Route: 048
     Dates: start: 201606, end: 20160705
  11. HORIZANT [Suspect]
     Active Substance: GABAPENTIN ENACARBIL
     Indication: PAIN
     Dosage: 1 DF 2 A DAY, MOUTH
     Route: 048
     Dates: start: 201606, end: 20160705
  12. ESTRACE [Concomitant]
     Active Substance: ESTRADIOL

REACTIONS (2)
  - Loss of consciousness [None]
  - Mental impairment [None]

NARRATIVE: CASE EVENT DATE: 20160802
